FAERS Safety Report 12639021 (Version 2)
Quarter: 2016Q4

REPORT INFORMATION
  Report Type: Report from Study
  Country: CA (occurrence: CA)
  Receive Date: 20160809
  Receipt Date: 20161013
  Transmission Date: 20170207
  Serious: Yes (Other)
  Sender: FDA-Public Use
  Company Number: PHHY2015CA072949

PATIENT
  Age: 64 Year
  Sex: Male

DRUGS (8)
  1. SANDOSTATIN LAR DEPOT [Suspect]
     Active Substance: OCTREOTIDE ACETATE
     Dosage: 30 MG, QMO (EVERY 4 WEEKS)
     Route: 030
     Dates: start: 20150831, end: 20160805
  2. METFORMIN [Concomitant]
     Active Substance: METFORMIN HYDROCHLORIDE
     Indication: PRODUCT USED FOR UNKNOWN INDICATION
     Route: 065
  3. INSULIN [Concomitant]
     Active Substance: INSULIN NOS
     Indication: DIABETES MELLITUS
     Dosage: (LONG AND SHORT ACTION INSULIN)
     Route: 065
  4. HYDROCHLOROTHIAZIDE. [Concomitant]
     Active Substance: HYDROCHLOROTHIAZIDE
     Indication: HYPERTENSION
     Route: 065
  5. SANDOSTATIN [Suspect]
     Active Substance: OCTREOTIDE ACETATE
     Indication: CARCINOID TUMOUR OF THE PANCREAS
     Dosage: ONCE/SINGLE
     Route: 058
     Dates: start: 20110124, end: 20110125
  6. SANDOSTATIN LAR DEPOT [Suspect]
     Active Substance: OCTREOTIDE ACETATE
     Indication: CARCINOID TUMOUR OF THE PANCREAS
     Dosage: 20 MG, QMO (EVERY 4 WEEKS)
     Route: 030
     Dates: start: 20110127
  7. ALTACE [Concomitant]
     Active Substance: RAMIPRIL
     Dosage: UNK UNK, QD
     Route: 065
  8. ALTACE [Concomitant]
     Active Substance: RAMIPRIL
     Indication: HYPERTENSION
     Dosage: UNK UNK, BID
     Route: 065

REACTIONS (13)
  - Blood pressure increased [Recovering/Resolving]
  - Back pain [Unknown]
  - Needle issue [Unknown]
  - Cancer pain [Unknown]
  - Stress [Unknown]
  - Recurrent cancer [Unknown]
  - Eating disorder [Unknown]
  - Tension [Unknown]
  - Nausea [Unknown]
  - Fatigue [Unknown]
  - Constipation [Unknown]
  - Abdominal pain [Recovering/Resolving]
  - Blood pressure systolic increased [Unknown]

NARRATIVE: CASE EVENT DATE: 20150612
